FAERS Safety Report 18142016 (Version 2)
Quarter: 2021Q3

REPORT INFORMATION
  Report Type: Spontaneous
  Country: CA (occurrence: CA)
  Receive Date: 20200813
  Receipt Date: 20210814
  Transmission Date: 20211014
  Serious: Yes (Death)
  Sender: FDA-Public Use
  Company Number: CA-TEVA-2020-CA-1812848

PATIENT
  Age: 46 Year
  Sex: Male

DRUGS (7)
  1. LEVETIRACETAM. [Concomitant]
     Active Substance: LEVETIRACETAM
  2. MIDAZOLAM (UNKNOWN) [Concomitant]
     Active Substance: MIDAZOLAM HYDROCHLORIDE
  3. KETAMINE (UNKNOWN) [Concomitant]
     Active Substance: KETAMINE
  4. PHENYTOIN. [Concomitant]
     Active Substance: PHENYTOIN
  5. PROPOFOL. [Suspect]
     Active Substance: PROPOFOL
     Indication: STATUS EPILEPTICUS
     Route: 042
  6. CLOBAZAM. [Concomitant]
     Active Substance: CLOBAZAM
  7. LACOSAMIDE. [Concomitant]
     Active Substance: LACOSAMIDE

REACTIONS (2)
  - Arrhythmia [Fatal]
  - Cardiac arrest [Fatal]
